FAERS Safety Report 5391685-4 (Version None)
Quarter: 2007Q3

REPORT INFORMATION
  Report Type: 
  Country: None (occurrence: None)
  Receive Date: 20070717
  Receipt Date: 20070702
  Transmission Date: 20080115
  Serious: Yes (Hospitalization)
  Sender: FDA-Public Use
  Company Number: S07-AUS-02906-01

PATIENT
  Age: 76 Year
  Sex: Female

DRUGS (3)
  1. ESCITALOPRAM OXALATE [Suspect]
     Indication: DEPRESSION
     Dosage: 10 MG, QD; PO
     Route: 048
     Dates: start: 20070501, end: 20070601
  2. ESCITALOPRAM OXALATE [Suspect]
     Indication: DEPRESSION
     Dosage: 5 MG, QD; PO
     Route: 048
     Dates: start: 20070101
  3. ESPIRIDE (SULPIRIDE) [Concomitant]

REACTIONS (1)
  - STATUS EPILEPTICUS [None]
